FAERS Safety Report 10186229 (Version 2)
Quarter: 2014Q2

REPORT INFORMATION
  Report Type: Spontaneous
  Country: US (occurrence: US)
  Receive Date: 20140521
  Receipt Date: 20140605
  Transmission Date: 20141212
  Serious: Yes (Hospitalization)
  Sender: FDA-Public Use
  Company Number: US-JNJFOC-20140512976

PATIENT
  Age: 71 Year
  Sex: Male
  Weight: 83 kg

DRUGS (22)
  1. IMBRUVICA [Suspect]
     Indication: CHRONIC LYMPHOCYTIC LEUKAEMIA
     Route: 048
     Dates: start: 20140428, end: 20140512
  2. IMBRUVICA [Suspect]
     Indication: CHRONIC LYMPHOCYTIC LEUKAEMIA
     Route: 048
     Dates: start: 20140513
  3. FOLIC ACID [Concomitant]
  4. COLACE [Concomitant]
     Route: 048
  5. FLUTICASONE PROPIONATE [Concomitant]
  6. LASIX [Concomitant]
     Dates: start: 201405
  7. LASIX [Concomitant]
     Dosage: 40 MG NIGHTTIME; 80 MG IN MORNING
     Dates: end: 201405
  8. ANUSOL (BISMUTH OXIDE,ZINC OXIDE,BISMUTH SUBGALLATE) [Concomitant]
  9. DIGOXIN [Concomitant]
  10. ACYCLOVIR [Concomitant]
  11. FINASTERIDE [Concomitant]
  12. KETOROLAC [Concomitant]
  13. LISINOPRIL [Concomitant]
  14. MAGNESIUM OXIDE [Concomitant]
  15. METOPROLOL [Concomitant]
  16. MULTIVITAMINS [Concomitant]
  17. OMEPRAZOLE [Concomitant]
  18. PREDNISOLONE ACETATE [Concomitant]
  19. CRESTOR [Concomitant]
  20. FLOMAX [Concomitant]
  21. COUMADIN [Concomitant]
     Dosage: 5 MG ALTERNATING 2.5 MG
  22. OTHER PLAIN VITAMIN PREPARATIONS [Concomitant]
     Dosage: 1-3 TABLESPOONS TWICE DAILY

REACTIONS (7)
  - Neutropenic sepsis [Recovered/Resolved]
  - Pyrexia [Recovered/Resolved]
  - Epistaxis [Recovered/Resolved]
  - Diarrhoea [Recovered/Resolved]
  - Anaemia [Unknown]
  - Dyspnoea [Unknown]
  - Hypomagnesaemia [Unknown]
